APPROVED DRUG PRODUCT: PROCAINAMIDE HYDROCHLORIDE
Active Ingredient: PROCAINAMIDE HYDROCHLORIDE
Strength: 100MG/ML
Dosage Form/Route: INJECTABLE;INJECTION
Application: A218135 | Product #001 | TE Code: AP
Applicant: GLAND PHARMA LTD
Approved: Jul 22, 2024 | RLD: No | RS: Yes | Type: RX